FAERS Safety Report 25942647 (Version 3)
Quarter: 2025Q4

REPORT INFORMATION
  Report Type: Spontaneous
  Country: US (occurrence: US)
  Receive Date: 20251021
  Receipt Date: 20251229
  Transmission Date: 20260118
  Serious: Yes (Other)
  Sender: ROCHE
  Company Number: US-002147023-NVSC2025US159901

PATIENT
  Age: 10 Year
  Sex: Male

DRUGS (25)
  1. OMALIZUMAB [Suspect]
     Active Substance: OMALIZUMAB
     Indication: Chronic spontaneous urticaria
  2. LIDOCAINE [Suspect]
     Active Substance: LIDOCAINE
     Indication: Chronic spontaneous urticaria
     Dosage: UNK (TOPICAL)
  3. BASILIXIMAB [Suspect]
     Active Substance: BASILIXIMAB
     Indication: Dermatitis atopic
     Dosage: 20 MG (AT DAYS 0, 21, AND 42, INFUSION)
     Route: 042
  4. BASILIXIMAB [Suspect]
     Active Substance: BASILIXIMAB
     Dosage: 20 MG, Q3W (FOR THREE DOSES, INFUSION)
     Route: 042
  5. BASILIXIMAB [Suspect]
     Active Substance: BASILIXIMAB
     Dosage: 20 MG, (SPACING TO EVERY 6WEEKS FOR TWO DOSES, INFUSION)
     Route: 042
  6. MONTELUKAST [Suspect]
     Active Substance: MONTELUKAST
     Indication: Chronic spontaneous urticaria
  7. ANAKINRA [Suspect]
     Active Substance: ANAKINRA
     Indication: Dermatitis atopic
     Dosage: 100 MG, QD
  8. ANAKINRA [Suspect]
     Active Substance: ANAKINRA
     Dosage: 100 MG, QD (0.67 ML, APPROXIMATELY 4MONTHS)
  9. GABAPENTIN [Suspect]
     Active Substance: GABAPENTIN
     Indication: Dermatitis atopic
     Dosage: 100 MG, QD (NIGHTLY)
  10. GABAPENTIN [Suspect]
     Active Substance: GABAPENTIN
     Dosage: 400 MG, QD (NIGHTLY)
  11. TACROLIMUS [Suspect]
     Active Substance: TACROLIMUS
     Indication: Dermatitis atopic
     Dosage: 0.1 %, BID (AS NEEDED)
  12. UPADACITINIB [Suspect]
     Active Substance: UPADACITINIB
     Indication: Dermatitis atopic
     Dosage: 15 MG, QD
  13. UPADACITINIB [Suspect]
     Active Substance: UPADACITINIB
     Dosage: 30 MG, QD
  14. CYCLOSPORINE [Suspect]
     Active Substance: CYCLOSPORINE
     Indication: Chronic spontaneous urticaria
     Dosage: 75 MG, BID (4 MG/KG)
  15. CYCLOSPORINE [Suspect]
     Active Substance: CYCLOSPORINE
     Dosage: 7 MG/KG, QD
  16. CYCLOSPORINE [Suspect]
     Active Substance: CYCLOSPORINE
     Dosage: 5 MG/KG, QD
  17. CYCLOSPORINE [Suspect]
     Active Substance: CYCLOSPORINE
     Dosage: 5 MG/KG, QD
  18. CYCLOSPORINE [Suspect]
     Active Substance: CYCLOSPORINE
     Dosage: 3.6 MG/KG, QD
  19. CLOBETASOL [Suspect]
     Active Substance: CLOBETASOL
     Indication: Dermatitis atopic
     Dosage: 0.05 %, BID
  20. DUPILUMAB [Suspect]
     Active Substance: DUPILUMAB
     Indication: Dermatitis atopic
     Dosage: 200 MG, Q2W
  21. DUPILUMAB [Suspect]
     Active Substance: DUPILUMAB
     Dosage: 400 MG, Q2W (FOR APPROXIMATELY 6 MONTHS)
  22. PREDNISONE [Suspect]
     Active Substance: PREDNISONE
     Indication: Chronic spontaneous urticaria
     Dosage: 60 MG
  23. PREDNISONE [Suspect]
     Active Substance: PREDNISONE
     Dosage: 20 MG, QD (TAPERED)
  24. PREDNISONE [Suspect]
     Active Substance: PREDNISONE
     Dosage: 60 MG, QD (TAPER (60-10 MG)
  25. CETIRIZINE [Concomitant]
     Active Substance: CETIRIZINE HYDROCHLORIDE
     Indication: Product used for unknown indication
     Dosage: 10 MG, QD

REACTIONS (5)
  - Nephropathy toxic [Unknown]
  - Viral infection [Unknown]
  - Urticaria [Recovered/Resolved]
  - Dermatitis atopic [Recovered/Resolved]
  - Treatment failure [Unknown]
